FAERS Safety Report 5263905-8 (Version None)
Quarter: 2007Q1

REPORT INFORMATION
  Report Type: 
  Country: None (occurrence: None)
  Receive Date: 20070313
  Receipt Date: 20070306
  Transmission Date: 20070707
  Serious: Yes (Hospitalization)
  Sender: FDA-Public Use
  Company Number: US-ELI_LILLY_AND_COMPANY-US200702000797

PATIENT
  Age: 42 Year
  Sex: Female

DRUGS (2)
  1. XIGRIS [Suspect]
     Indication: UROSEPSIS
  2. VASOPRESSIN [Concomitant]
     Dates: start: 20070203

REACTIONS (1)
  - THROMBOCYTOPENIA [None]
